FAERS Safety Report 6011015-4 (Version None)
Quarter: 2008Q4

REPORT INFORMATION
  Report Type: 
  Country: None (occurrence: None)
  Receive Date: 20081218
  Receipt Date: 20081217
  Transmission Date: 20090506
  Serious: Yes (Hospitalization)
  Sender: FDA-Public Use
  Company Number: Z0000597D

PATIENT
  Age: 69 Year
  Sex: Female
  Weight: 67.6 kg

DRUGS (2)
  1. LAPATINIB [Suspect]
     Dosage: 1250MG PER DAY
     Route: 048
     Dates: start: 20081106
  2. PACLITAXEL [Suspect]
     Dosage: 125MGM2 CYCLIC
     Route: 042
     Dates: start: 20081106

REACTIONS (1)
  - FEBRILE NEUTROPENIA [None]
